FAERS Safety Report 15738039 (Version 1)
Quarter: 2018Q4

REPORT INFORMATION
  Report Type: Report from Study
  Country: RU (occurrence: RU)
  Receive Date: 20181219
  Receipt Date: 20181219
  Transmission Date: 20190205
  Serious: Yes (Other)
  Sender: FDA-Public Use
  Company Number: RU-UCBSA-2018054648

PATIENT

DRUGS (1)
  1. LEVETIRACETAM. [Suspect]
     Active Substance: LEVETIRACETAM
     Indication: EPILEPSY
     Dosage: UNKNOWN DOSE

REACTIONS (7)
  - Agitation [Unknown]
  - Aggression [Unknown]
  - Irritability [Unknown]
  - Seizure [Unknown]
  - Hallucination [Unknown]
  - Drug effect decreased [Unknown]
  - Anxiety [Unknown]
